FAERS Safety Report 5447708-7 (Version None)
Quarter: 2007Q3

REPORT INFORMATION
  Report Type: 
  Country: None (occurrence: None)
  Receive Date: 20070910
  Receipt Date: 20070831
  Transmission Date: 20080115
  Serious: Yes (Hospitalization)
  Sender: FDA-Public Use
  Company Number: US-ROCHE-515090

PATIENT
  Age: 82 Year
  Sex: Male
  Weight: 81.6 kg

DRUGS (2)
  1. NAPROSYN [Suspect]
     Indication: ARTHRITIS
     Route: 065
     Dates: start: 20040101, end: 20070101
  2. NAPROSYN [Suspect]
     Route: 065
     Dates: start: 20070701, end: 20070801

REACTIONS (5)
  - COORDINATION ABNORMAL [None]
  - COUGH [None]
  - MENINGITIS [None]
  - SINUSITIS [None]
  - VASCULITIS CEREBRAL [None]
